FAERS Safety Report 8346208-4 (Version None)
Quarter: 2012Q2

REPORT INFORMATION
  Report Type: 
  Country: None (occurrence: None)
  Receive Date: 20120507
  Receipt Date: 20120427
  Transmission Date: 20120825
  Serious: Yes (Death, Hospitalization)
  Sender: FDA-Public Use
  Company Number: US-2011-3438

PATIENT
  Age: 57 Year
  Sex: Male

DRUGS (5)
  1. VINORELBINE [Suspect]
     Indication: LUNG CANCER METASTATIC
     Dosage: 49 MG IV
     Route: 042
     Dates: start: 20110629, end: 20111109
  2. CISPLATIN [Suspect]
     Indication: LUNG CANCER METASTATIC
     Dosage: 156 MG IV
     Route: 042
     Dates: start: 20110629, end: 20111102
  3. CETUXIMAB [Suspect]
     Indication: LUNG CANCER METASTATIC
     Dosage: 780 MG IV
     Route: 042
     Dates: start: 20110629, end: 20111116
  4. DIOVAN [Concomitant]
  5. RANITIDINE [Concomitant]

REACTIONS (5)
  - PNEUMONIA [None]
  - BREAST CANCER METASTATIC [None]
  - RESPIRATORY DISTRESS [None]
  - RENAL FAILURE ACUTE [None]
  - NEOPLASM PROGRESSION [None]
